FAERS Safety Report 9532273 (Version 1)
Quarter: 2013Q1

REPORT INFORMATION
  Report Type: Spontaneous
  Country: US (occurrence: None)
  Receive Date: 20130329
  Receipt Date: 20130329
  Transmission Date: 20140127
  Serious: No
  Sender: FDA-Public Use
  Company Number: 1000041614

PATIENT
  Age: 72 Year
  Sex: Male

DRUGS (2)
  1. LINZESS (LINACLOTIDE) (290 MICROGRAM, CAPSULES) [Suspect]
     Indication: IRRITABLE BOWEL SYNDROME
     Dosage: 1 IN 1 D
     Route: 048
     Dates: start: 20130111
  2. BLOOD PRESSURE PILL (NOS) BLOOD PRESSURE PILL (NOS) ) (BLOOD PRESSURE PILL) (NOS)) [Concomitant]

REACTIONS (1)
  - Diarrhoea [None]
